FAERS Safety Report 24671160 (Version 2)
Quarter: 2024Q4

REPORT INFORMATION
  Report Type: Spontaneous
  Country: AU (occurrence: AU)
  Receive Date: 20241127
  Receipt Date: 20241203
  Transmission Date: 20250115
  Serious: Yes (Death, Hospitalization)
  Sender: MYLAN
  Company Number: AU-MYLANLABS-2024M1105148

PATIENT
  Age: 85 Year
  Sex: Female

DRUGS (1)
  1. CLOZARIL [Suspect]
     Active Substance: CLOZAPINE
     Indication: Schizophrenia
     Dosage: 75 MILLIGRAM
     Route: 048
     Dates: start: 20230921, end: 20241116

REACTIONS (4)
  - COVID-19 [Fatal]
  - Delirium [Fatal]
  - Pneumonia [Fatal]
  - Therapy interrupted [Unknown]

NARRATIVE: CASE EVENT DATE: 20241116
